FAERS Safety Report 7658524-X (Version None)
Quarter: 2011Q3

REPORT INFORMATION
  Report Type: 
  Country: None (occurrence: None)
  Receive Date: 20110805
  Receipt Date: 20110721
  Transmission Date: 20111222
  Serious: Yes (Hospitalization, Other)
  Sender: FDA-Public Use
  Company Number: US-ELI_LILLY_AND_COMPANY-US201101003064

PATIENT
  Sex: Female

DRUGS (7)
  1. ALIGN [Concomitant]
  2. INDERAL [Concomitant]
  3. LIBRAX /00847101/ [Concomitant]
  4. TYLENOL WITH CODEIN #4 [Concomitant]
  5. FORTEO [Suspect]
     Indication: OSTEOPOROSIS
     Dosage: 20 UG, DAILY (1/D)
     Dates: start: 20110111, end: 20110118
  6. ZOLOFT [Concomitant]
  7. PLAVIX [Concomitant]

REACTIONS (8)
  - DIARRHOEA [None]
  - DIZZINESS [None]
  - NAUSEA [None]
  - FEELING ABNORMAL [None]
  - PNEUMONIA [None]
  - DEHYDRATION [None]
  - VOMITING [None]
  - MALAISE [None]
